FAERS Safety Report 13673517 (Version 4)
Quarter: 2017Q3

REPORT INFORMATION
  Report Type: Report from Study
  Country: CA (occurrence: CA)
  Receive Date: 20170621
  Receipt Date: 20170915
  Transmission Date: 20171127
  Serious: Yes (Hospitalization)
  Sender: FDA-Public Use
  Company Number: CA-HLSUS-2017-CA-000416

PATIENT
  Age: 63 Year
  Sex: Female

DRUGS (1)
  1. CLOZARIL [Suspect]
     Active Substance: CLOZAPINE
     Dosage: 350 MG
     Route: 048
     Dates: start: 19930308, end: 20170418

REACTIONS (8)
  - Decreased appetite [Unknown]
  - Psychiatric decompensation [Not Recovered/Not Resolved]
  - Treatment noncompliance [Unknown]
  - Weight decreased [Unknown]
  - Nausea [Recovering/Resolving]
  - Thirst decreased [Unknown]
  - Constipation [Recovered/Resolved with Sequelae]
  - Diarrhoea [Unknown]

NARRATIVE: CASE EVENT DATE: 20170418
